FAERS Safety Report 5502771-X (Version None)
Quarter: 2007Q4

REPORT INFORMATION
  Report Type: 
  Country: None (occurrence: None)
  Receive Date: 20071031
  Receipt Date: 20071023
  Transmission Date: 20080405
  Serious: Yes (Other)
  Sender: FDA-Public Use
  Company Number: CA-ASTRAZENECA-2007UW24893

PATIENT
  Age: 40 Year
  Sex: Female

DRUGS (2)
  1. NEXIUM [Suspect]
     Route: 048
  2. DOMPERIDONE [Concomitant]

REACTIONS (10)
  - ABDOMINAL PAIN UPPER [None]
  - BREAST ENLARGEMENT [None]
  - DERMATITIS [None]
  - DYSPNOEA [None]
  - FATIGUE [None]
  - MENSTRUAL DISORDER [None]
  - MUSCULAR WEAKNESS [None]
  - MYOCARDIAL INFARCTION [None]
  - SWELLING [None]
  - WEIGHT INCREASED [None]
